FAERS Safety Report 10112190 (Version 2)
Quarter: 2014Q4

REPORT INFORMATION
  Report Type: Other
  Country: US (occurrence: US)
  Receive Date: 20140425
  Receipt Date: 20141203
  Transmission Date: 20150528
  Serious: Yes (Hospitalization, Other)
  Sender: FDA-Public Use
  Company Number: US-GSKPPD-2014GSK008702

PATIENT
  Age: 50 Year
  Sex: Male

DRUGS (10)
  1. COREG [Concomitant]
     Active Substance: CARVEDILOL
  2. LISINOPRIL. [Concomitant]
     Active Substance: LISINOPRIL
  3. ASPIRIN. [Concomitant]
     Active Substance: ASPIRIN
  4. AVANDIA [Suspect]
     Active Substance: ROSIGLITAZONE MALEATE
     Indication: DIABETES MELLITUS
     Dosage: AVANDIA WAS NOT LISTED AMONG THE PATIENTS RECORDS REVIEWED.
     Route: 048
  5. AMIODARONE [Concomitant]
     Active Substance: AMIODARONE
  6. LIPITOR [Concomitant]
     Active Substance: ATORVASTATIN CALCIUM
  7. SIMVASTATIN. [Concomitant]
     Active Substance: SIMVASTATIN
  8. NORVASC [Concomitant]
     Active Substance: AMLODIPINE BESYLATE
  9. LASIX [Concomitant]
     Active Substance: FUROSEMIDE
  10. METOPROLOL [Concomitant]
     Active Substance: METOPROLOL

REACTIONS (5)
  - Mitral valve incompetence [Recovered/Resolved]
  - Myocardial infarction [Unknown]
  - Atrial fibrillation [Recovered/Resolved]
  - Hypertension [Recovered/Resolved]
  - Coronary artery disease [Recovered/Resolved]

NARRATIVE: CASE EVENT DATE: 20110503
